FAERS Safety Report 9540733 (Version 2)
Quarter: 2013Q4

REPORT INFORMATION
  Report Type: Spontaneous
  Country: US (occurrence: US)
  Receive Date: 20130920
  Receipt Date: 20131021
  Transmission Date: 20140711
  Serious: No
  Sender: FDA-Public Use
  Company Number: US-PFIZER INC-2013270880

PATIENT
  Age: 49 Year
  Sex: Female
  Weight: 59 kg

DRUGS (2)
  1. LYRICA [Suspect]
     Indication: FIBROMYALGIA
     Dosage: 50MG DAILY
     Route: 048
     Dates: start: 201208
  2. FROVA [Concomitant]
     Indication: MIGRAINE
     Dosage: 2.5 MG, UNK

REACTIONS (2)
  - Glossodynia [Not Recovered/Not Resolved]
  - Tooth disorder [Not Recovered/Not Resolved]
